FAERS Safety Report 6017734-8 (Version None)
Quarter: 2008Q4

REPORT INFORMATION
  Report Type: 
  Country: None (occurrence: None)
  Receive Date: 20081223
  Receipt Date: 20081216
  Transmission Date: 20090506
  Serious: Yes (Other)
  Sender: FDA-Public Use
  Company Number: GB-TEVA-182792ISR

PATIENT
  Age: 19 Year
  Sex: Male

DRUGS (1)
  1. METRONIDAZOLE [Suspect]
     Indication: TOOTH INFECTION
     Route: 048
     Dates: start: 20081113, end: 20081115

REACTIONS (3)
  - CHEST PAIN [None]
  - MYOCARDITIS [None]
  - TROPONIN I INCREASED [None]
